FAERS Safety Report 8209268-7 (Version None)
Quarter: 2012Q1

REPORT INFORMATION
  Report Type: 
  Country: None (occurrence: None)
  Receive Date: 20120314
  Receipt Date: 20120305
  Transmission Date: 20120608
  Serious: No
  Sender: FDA-Public Use
  Company Number: US-BAYER-2012-024221

PATIENT
  Age: 40 Year
  Sex: Male
  Weight: 104.31 kg

DRUGS (13)
  1. PRISTIQ [Suspect]
     Indication: MAJOR DEPRESSION
     Dosage: 50 MG, QD
     Dates: start: 20100101
  2. RESTORIL [Concomitant]
     Dosage: 30 MG, UNK
  3. BUPROPION HCL [Concomitant]
     Indication: DEPRESSION
     Dosage: 150 MG, UNK
  4. TESSALON [Suspect]
     Dosage: UNK
  5. COZAAR [Concomitant]
     Indication: BLOOD PRESSURE ABNORMAL
     Dosage: 100 MG, QD
  6. CIPROFLOXACIN [Suspect]
     Indication: COUGH
     Dosage: 500 MG, QD
  7. NEXIUM [Suspect]
     Indication: GASTROOESOPHAGEAL REFLUX DISEASE
     Dosage: 40 MG, UNK
  8. AZITHROMYCIN [Suspect]
     Indication: COUGH
     Dosage: 500 MG, UNK
     Dates: start: 20120127
  9. SINGULAIR [Concomitant]
     Indication: ASTHMA
     Dosage: 10 MG, QD
  10. AUGMENTIN '125' [Suspect]
     Indication: COUGH
     Dosage: UNK
  11. ANTIBIOTICS [Suspect]
     Indication: COUGH
     Dosage: UNK
  12. OMEPRAZOLE [Suspect]
     Indication: GASTROOESOPHAGEAL REFLUX DISEASE
     Dosage: 60 MG, BID
     Route: 048
  13. LAMISIL [Concomitant]
     Indication: TINEA PEDIS
     Dosage: 150 MG, UNK

REACTIONS (3)
  - GASTROOESOPHAGEAL REFLUX DISEASE [None]
  - COUGH [None]
  - NASOPHARYNGITIS [None]
